FAERS Safety Report 18632581 (Version 1)
Quarter: 2020Q4

REPORT INFORMATION
  Report Type: Spontaneous
  Country: AR (occurrence: AR)
  Receive Date: 20201218
  Receipt Date: 20201218
  Transmission Date: 20210114
  Serious: No
  Sender: FDA-Public Use
  Company Number: AR-LUPIN PHARMACEUTICALS INC.-2020-05413

PATIENT
  Sex: Male
  Weight: 2.87 kg

DRUGS (5)
  1. URSODEOXYCHOLIC ACID [Suspect]
     Active Substance: URSODIOL
     Indication: PRODUCT USED FOR UNKNOWN INDICATION
     Dosage: UNK
     Route: 064
  2. POTASSIUM [Suspect]
     Active Substance: POTASSIUM
     Indication: PRODUCT USED FOR UNKNOWN INDICATION
     Dosage: UNK
     Route: 064
  3. SULFASALAZINE. [Suspect]
     Active Substance: SULFASALAZINE
     Indication: PRODUCT USED FOR UNKNOWN INDICATION
     Dosage: UNK
     Route: 064
  4. POLIDOCANOL. [Suspect]
     Active Substance: POLIDOCANOL
     Indication: GASTROOESOPHAGEAL VARICEAL HAEMORRHAGE PROPHYLAXIS
     Dosage: UNK
     Route: 064
  5. FOLIC ACID. [Suspect]
     Active Substance: FOLIC ACID
     Indication: PRODUCT USED FOR UNKNOWN INDICATION
     Dosage: UNK
     Route: 064

REACTIONS (3)
  - Foetal exposure during pregnancy [Unknown]
  - Transient tachypnoea of the newborn [Unknown]
  - Hyperbilirubinaemia neonatal [Unknown]
